FAERS Safety Report 17347390 (Version 9)
Quarter: 2020Q3

REPORT INFORMATION
  Report Type: Report from Study
  Country: IL (occurrence: IL)
  Receive Date: 20200130
  Receipt Date: 20200908
  Transmission Date: 20201102
  Serious: Yes (Hospitalization, Other)
  Sender: FDA-Public Use
  Company Number: NVSC2019IL036827

PATIENT
  Age: 65 Year
  Sex: Female

DRUGS (4)
  1. KISQALI [Suspect]
     Active Substance: RIBOCICLIB
     Dosage: 600 MG, QD
     Route: 048
     Dates: start: 20191217
  2. KISQALI [Suspect]
     Active Substance: RIBOCICLIB
     Dosage: 400 MG, QD
     Route: 048
     Dates: start: 20200215
  3. KISQALI [Suspect]
     Active Substance: RIBOCICLIB
     Indication: BREAST CANCER
     Dosage: 600 MG, QD
     Route: 048
     Dates: start: 20191106, end: 20191204
  4. KISQALI [Suspect]
     Active Substance: RIBOCICLIB
     Dosage: 200 MG, QD
     Route: 048

REACTIONS (23)
  - Swelling [Recovering/Resolving]
  - Lacrimation increased [Not Recovered/Not Resolved]
  - Thrombophlebitis superficial [Recovering/Resolving]
  - Fatigue [Not Recovered/Not Resolved]
  - Vomiting [Recovered/Resolved]
  - Eye swelling [Not Recovered/Not Resolved]
  - Restlessness [Unknown]
  - Anaemia [Not Recovered/Not Resolved]
  - Eye swelling [Recovered/Resolved]
  - Pain in extremity [Recovering/Resolving]
  - Musculoskeletal discomfort [Not Recovered/Not Resolved]
  - Nausea [Not Recovered/Not Resolved]
  - Thrombosis [Not Recovered/Not Resolved]
  - Erythema [Recovering/Resolving]
  - White blood cell count decreased [Not Recovered/Not Resolved]
  - Decreased appetite [Recovering/Resolving]
  - Vomiting [Recovered/Resolved]
  - Diarrhoea [Recovered/Resolved]
  - Hypoaesthesia [Recovered/Resolved]
  - Rash macular [Not Recovered/Not Resolved]
  - Cough [Not Recovered/Not Resolved]
  - Pruritus [Not Recovered/Not Resolved]
  - Renal disorder [Not Recovered/Not Resolved]

NARRATIVE: CASE EVENT DATE: 20191217
